FAERS Safety Report 7299145-0 (Version None)
Quarter: 2011Q1

REPORT INFORMATION
  Report Type: 
  Country: None (occurrence: None)
  Receive Date: 20110217
  Receipt Date: 20110214
  Transmission Date: 20110831
  Serious: Yes (Other)
  Sender: FDA-Public Use
  Company Number: US-AMGEN-USASP2011006262

PATIENT
  Age: 37 Year
  Sex: Female

DRUGS (3)
  1. NPLATE [Suspect]
     Dates: start: 20100811, end: 20100901
  2. NPLATE [Suspect]
     Indication: IDIOPATHIC THROMBOCYTOPENIC PURPURA
     Dosage: 81 A?G, QWK
     Route: 058
     Dates: start: 20100811, end: 20100901
  3. CORTICOSTEROIDS [Concomitant]

REACTIONS (2)
  - ADVERSE DRUG REACTION [None]
  - PAIN [None]
